FAERS Safety Report 19267555 (Version 1)
Quarter: 2021Q2

REPORT INFORMATION
  Report Type: Spontaneous
  Country: PL (occurrence: PL)
  Receive Date: 20210517
  Receipt Date: 20210517
  Transmission Date: 20210717
  Serious: Yes (Other)
  Sender: FDA-Public Use
  Company Number: PL-PFIZER INC-2021490953

PATIENT
  Age: 62 Year
  Sex: Male
  Weight: 82 kg

DRUGS (3)
  1. SUTENT [Suspect]
     Active Substance: SUNITINIB MALATE
     Indication: RENAL CANCER
     Dosage: 50 MG, COURSE 1?4
     Route: 048
  2. SUTENT [Suspect]
     Active Substance: SUNITINIB MALATE
     Dosage: 37.5 MG, COURSE 5
  3. SUTENT [Suspect]
     Active Substance: SUNITINIB MALATE
     Dosage: COURSE 6?8

REACTIONS (30)
  - Neutropenia [Unknown]
  - Hypothyroidism [Unknown]
  - Bundle branch block right [Unknown]
  - Aspartate aminotransferase increased [Unknown]
  - Dyspnoea [Unknown]
  - Paraesthesia [Unknown]
  - Dyspepsia [Unknown]
  - Chronic kidney disease [Unknown]
  - Disturbance in attention [Unknown]
  - Weight decreased [Unknown]
  - Muscle spasms [Unknown]
  - Ventricular dysfunction [Unknown]
  - Decreased appetite [Unknown]
  - Alanine aminotransferase increased [Unknown]
  - Weight increased [Unknown]
  - Hair colour changes [Unknown]
  - Nail growth abnormal [Unknown]
  - Leukopenia [Unknown]
  - Abdominal pain [Unknown]
  - Blood pressure increased [Unknown]
  - Fatigue [Unknown]
  - Circulatory collapse [Unknown]
  - Faeces discoloured [Unknown]
  - Thrombosis prophylaxis [Unknown]
  - Memory impairment [Unknown]
  - Nausea [Unknown]
  - Diarrhoea [Unknown]
  - Pulmonary infarction [Unknown]
  - Hyperaemia [Unknown]
  - Hyperhidrosis [Unknown]
